FAERS Safety Report 8389896-9 (Version None)
Quarter: 2012Q2

REPORT INFORMATION
  Report Type: 
  Country: None (occurrence: None)
  Receive Date: 20120529
  Receipt Date: 20120502
  Transmission Date: 20120825
  Serious: Yes (Other)
  Sender: FDA-Public Use
  Company Number: US-JNJFOC-20120515145

PATIENT
  Sex: Male
  Weight: 84.37 kg

DRUGS (5)
  1. REMICADE [Suspect]
     Route: 042
  2. REMICADE [Suspect]
     Route: 042
     Dates: start: 20100611, end: 20100611
  3. REMICADE [Suspect]
     Indication: RHEUMATOID ARTHRITIS
     Route: 042
     Dates: start: 20091221
  4. BENADRYL [Concomitant]
     Indication: PREMEDICATION
     Route: 048
     Dates: start: 20100709
  5. REMICADE [Suspect]
     Route: 042
     Dates: start: 20100709, end: 20100709

REACTIONS (6)
  - VOMITING [None]
  - FLUSHING [None]
  - TACHYCARDIA [None]
  - INFUSION RELATED REACTION [None]
  - NAUSEA [None]
  - CHEST DISCOMFORT [None]
